FAERS Safety Report 19650452 (Version 1)
Quarter: 2021Q3

REPORT INFORMATION
  Report Type: Spontaneous
  Country: US (occurrence: US)
  Receive Date: 20210731
  Receipt Date: 20210731
  Transmission Date: 20211014
  Serious: No
  Sender: FDA-Public Use
  Company Number: None

PATIENT
  Sex: Female

DRUGS (6)
  1. EXEMESTANE 25MG [Suspect]
     Active Substance: EXEMESTANE
     Indication: BREAST CANCER
     Route: 048
     Dates: start: 20200707
  2. PREDNISONE. [Suspect]
     Active Substance: PREDNISONE
  3. XGEVA [Suspect]
     Active Substance: DENOSUMAB
  4. ONDANSETRON [Suspect]
     Active Substance: ONDANSETRON
  5. ASPIRIN. [Suspect]
     Active Substance: ASPIRIN
  6. CYANOCOBALAMIN. [Suspect]
     Active Substance: CYANOCOBALAMIN

REACTIONS (1)
  - Therapy non-responder [None]
